FAERS Safety Report 4310404-3 (Version None)
Quarter: 2004Q1

REPORT INFORMATION
  Report Type: 
  Country: None (occurrence: None)
  Receive Date: 20040303
  Receipt Date: 20040205
  Transmission Date: 20041129
  Serious: Yes (Other)
  Sender: FDA-Public Use
  Company Number: PHBS2004CA01949

PATIENT
  Age: 36 Year
  Sex: Male

DRUGS (3)
  1. CLOZARIL [Suspect]
     Indication: PSYCHOTIC DISORDER
     Dosage: 350 MG/D
     Route: 048
     Dates: start: 19970801
  2. CLOZARIL [Suspect]
     Dosage: 350 MG/D
     Dates: start: 20020801
  3. EFFEXOR [Concomitant]
     Dosage: 75 MG/D
     Route: 065
     Dates: start: 20031001

REACTIONS (5)
  - ANAEMIA [None]
  - BLOOD TRIGLYCERIDES INCREASED [None]
  - MYOCLONUS [None]
  - PSYCHOTIC DISORDER [None]
  - TACHYCARDIA [None]
